FAERS Safety Report 5857913-3 (Version None)
Quarter: 2008Q3

REPORT INFORMATION
  Report Type: 
  Country: None (occurrence: None)
  Receive Date: 20080826
  Receipt Date: 20080818
  Transmission Date: 20090109
  Serious: No
  Sender: FDA-Public Use
  Company Number: AT-ASTRAZENECA-2008PK01816

PATIENT
  Sex: Female

DRUGS (1)
  1. DIPRIVAN [Suspect]

REACTIONS (1)
  - CHROMATURIA [None]
